FAERS Safety Report 7691573-4 (Version None)
Quarter: 2011Q3

REPORT INFORMATION
  Report Type: 
  Country: None (occurrence: None)
  Receive Date: 20110818
  Receipt Date: 20110818
  Transmission Date: 20111222
  Serious: Yes (Life-Threatening)
  Sender: FDA-Public Use
  Company Number: None

PATIENT
  Sex: Female
  Weight: 127.45 kg

DRUGS (1)
  1. SPRYCEL [Suspect]
     Indication: CHRONIC MYELOID LEUKAEMIA
     Dosage: 100 MG
     Route: 048
     Dates: start: 20080615, end: 20110401

REACTIONS (9)
  - PULMONARY CONGESTION [None]
  - DYSPNOEA EXERTIONAL [None]
  - DILATATION VENTRICULAR [None]
  - HIATUS HERNIA [None]
  - PULMONARY HYPERTENSION [None]
  - CARDIAC OUTPUT DECREASED [None]
  - AORTIC VALVE CALCIFICATION [None]
  - CARDIOMEGALY [None]
  - PERICARDIAL EFFUSION [None]
